FAERS Safety Report 16857318 (Version 3)
Quarter: 2019Q4

REPORT INFORMATION
  Report Type: Spontaneous
  Country: GB (occurrence: GB)
  Receive Date: 20190926
  Receipt Date: 20191122
  Transmission Date: 20200122
  Serious: Yes (Hospitalization, Other)
  Sender: FDA-Public Use
  Company Number: GB-SA-2019SA264840

PATIENT
  Age: 31 Year
  Sex: Male

DRUGS (3)
  1. LEMTRADA [Suspect]
     Active Substance: ALEMTUZUMAB
     Indication: RELAPSING-REMITTING MULTIPLE SCLEROSIS
     Dosage: UNK UNK, UNK
     Route: 041
     Dates: start: 20180108
  2. RITUXIMAB. [Concomitant]
     Active Substance: RITUXIMAB
     Dosage: 750 MG; BI-WEEKLY
     Route: 042
     Dates: start: 2019
  3. RITUXIMAB. [Concomitant]
     Active Substance: RITUXIMAB
     Dosage: 750 MG; WEEKLY
     Route: 042
     Dates: start: 20191016, end: 20191106

REACTIONS (15)
  - Thrombotic thrombocytopenic purpura [Unknown]
  - Reticulocyte count increased [Unknown]
  - Neutrophil count increased [Unknown]
  - Mean cell haemoglobin increased [Unknown]
  - Red blood cell count decreased [Unknown]
  - Platelet count decreased [Unknown]
  - Red cell distribution width increased [Unknown]
  - Haemoglobin decreased [Unknown]
  - White blood cell count increased [Unknown]
  - Monocyte count increased [Unknown]
  - Haematocrit decreased [Unknown]
  - Lymphocyte count decreased [Unknown]
  - Eosinophil count decreased [Unknown]
  - Mean cell volume increased [Unknown]
  - White blood cell count decreased [Unknown]

NARRATIVE: CASE EVENT DATE: 20190917
